FAERS Safety Report 22022005 (Version 2)
Quarter: 2023Q1

REPORT INFORMATION
  Report Type: Spontaneous
  Country: JP (occurrence: JP)
  Receive Date: 20230222
  Receipt Date: 20230309
  Transmission Date: 20230418
  Serious: Yes (Hospitalization)
  Sender: FDA-Public Use
  Company Number: JP-GUERBETG_JAPAN-JP-20230017

PATIENT
  Age: 15 Year
  Sex: Male
  Weight: 65 kg

DRUGS (1)
  1. GADOTERATE MEGLUMINE [Suspect]
     Active Substance: GADOTERATE MEGLUMINE
     Indication: Product used for unknown indication
     Dosage: (65% FOR WEIGHT)
     Route: 042
     Dates: start: 20230210, end: 20230210

REACTIONS (3)
  - Dyspnoea [Recovered/Resolved]
  - Rash [Recovered/Resolved]
  - Laryngeal discomfort [Recovered/Resolved]

NARRATIVE: CASE EVENT DATE: 20230210
